FAERS Safety Report 20064701 (Version 1)
Quarter: 2021Q4

REPORT INFORMATION
  Report Type: Spontaneous
  Country: US (occurrence: None)
  Receive Date: 20211112
  Receipt Date: 20211112
  Transmission Date: 20220304
  Serious: No
  Sender: FDA-Public Use
  Company Number: 2021A790057

PATIENT
  Age: 773 Month
  Sex: Female
  Weight: 67.1 kg

DRUGS (1)
  1. SYMBICORT [Suspect]
     Active Substance: BUDESONIDE\FORMOTEROL FUMARATE DIHYDRATE
     Indication: Asthma
     Dosage: 160/4.5 MCGS TWO PUFFS TWICE DAILY
     Route: 055

REACTIONS (3)
  - COVID-19 [Recovered/Resolved]
  - Prescription drug used without a prescription [Unknown]
  - Product dose omission issue [Unknown]

NARRATIVE: CASE EVENT DATE: 20210101
